FAERS Safety Report 8558898-1 (Version None)
Quarter: 2012Q3

REPORT INFORMATION
  Report Type: 
  Country: None (occurrence: None)
  Receive Date: 20120801
  Receipt Date: 20120724
  Transmission Date: 20120928
  Serious: No
  Sender: FDA-Public Use
  Company Number: US-009507513-1207USA009571

PATIENT

DRUGS (2)
  1. JANUMET [Concomitant]
     Dosage: UNK
     Route: 048
     Dates: start: 20110101, end: 20110101
  2. JANUVIA [Suspect]
     Indication: DIABETES MELLITUS
     Dosage: UNK
     Route: 048

REACTIONS (1)
  - DIARRHOEA [None]
